FAERS Safety Report 5841045-4 (Version None)
Quarter: 2008Q3

REPORT INFORMATION
  Report Type: 
  Country: None (occurrence: None)
  Receive Date: 20080811
  Receipt Date: 20080730
  Transmission Date: 20090109
  Serious: Yes (Hospitalization)
  Sender: FDA-Public Use
  Company Number: DE-AMGEN-UK298519

PATIENT
  Sex: Female
  Weight: 79 kg

DRUGS (4)
  1. NEULASTA [Suspect]
     Indication: CHEMOTHERAPY
     Route: 058
     Dates: start: 20080724
  2. DOCETAXEL [Suspect]
     Route: 042
     Dates: start: 20080723, end: 20080723
  3. DOXORUBICIN HCL [Suspect]
     Route: 042
     Dates: start: 20080723, end: 20080723
  4. CYCLOPHOSPHAMIDE [Suspect]
     Route: 042
     Dates: start: 20080723, end: 20080723

REACTIONS (2)
  - GENERAL PHYSICAL HEALTH DETERIORATION [None]
  - NAUSEA [None]
